FAERS Safety Report 24408553 (Version 1)
Quarter: 2024Q4

REPORT INFORMATION
  Report Type: Report from Study
  Country: US (occurrence: US)
  Receive Date: 20241007
  Receipt Date: 20241007
  Transmission Date: 20250115
  Serious: Yes (Hospitalization)
  Sender: EISAI
  Company Number: US-Eisai-EC-2024-176269

PATIENT
  Age: 75 Year
  Sex: Male
  Weight: 101.0 kg

DRUGS (28)
  1. LENVIMA [Suspect]
     Active Substance: LENVATINIB
     Indication: Hepatocellular carcinoma
     Route: 048
     Dates: start: 20230828, end: 202312
  2. LENVIMA [Suspect]
     Active Substance: LENVATINIB
     Route: 048
     Dates: start: 202312, end: 202403
  3. LENVIMA [Suspect]
     Active Substance: LENVATINIB
     Route: 048
     Dates: start: 202403, end: 202405
  4. LENVIMA [Suspect]
     Active Substance: LENVATINIB
     Route: 048
     Dates: start: 202405, end: 2024
  5. LENVIMA [Suspect]
     Active Substance: LENVATINIB
     Route: 048
     Dates: start: 20240809, end: 202409
  6. LENVIMA [Suspect]
     Active Substance: LENVATINIB
     Route: 048
     Dates: start: 202409
  7. METFORMIN HYDROCHLORIDE [Concomitant]
     Active Substance: METFORMIN HYDROCHLORIDE
     Indication: Product used for unknown indication
     Dosage: DOSE AND FREQUENCY UNKNOWN
     Dates: end: 2023
  8. ANORO ELLIPTA [Concomitant]
     Active Substance: UMECLIDINIUM BROMIDE\VILANTEROL TRIFENATATE
     Dosage: DOSE AND FREQUENCY UNKNOWN
  9. ALBUTEROL SULFATE [Concomitant]
     Active Substance: ALBUTEROL SULFATE
     Dosage: DOSE AND FREQUENCY UNKNOWN
  10. ALFUZOSIN HYDROCHLORIDE [Concomitant]
     Active Substance: ALFUZOSIN HYDROCHLORIDE
     Dosage: DOSE AND FREQUENCY UNKNOWN
  11. HYDROXYZINE HYDROCHLORIDE [Concomitant]
     Active Substance: HYDROXYZINE HYDROCHLORIDE
     Dosage: DOSE AND FREQUENCY UNKNOWN
  12. CIALIS [Concomitant]
     Active Substance: TADALAFIL
     Dosage: DOSE AND FREQUENCY UNKNOWN
  13. OMEPRAZOLE [Concomitant]
     Active Substance: OMEPRAZOLE
     Dosage: DOSE AND FREQUENCY UNKNOWN
  14. DICLOFENAC SODIUM [Concomitant]
     Active Substance: DICLOFENAC SODIUM
     Dosage: DOSE AND FREQUENCY UNKNOWN
  15. ATORVASTATIN CALCIUM [Concomitant]
     Active Substance: ATORVASTATIN CALCIUM
     Dosage: DOSE AND FREQUENCY UNKNOWN
  16. OLANZAPINE [Concomitant]
     Active Substance: OLANZAPINE
     Dosage: DOSE AND FREQUENCY UNKNOWN
  17. VALIUM [Concomitant]
     Active Substance: DIAZEPAM
     Dosage: DOSE AND FREQUENCY UNKNOWN
  18. FLUTICASONE PROPIONATE [Concomitant]
     Active Substance: FLUTICASONE PROPIONATE
     Dosage: DOSE AND FREQUENCY UNKNOWN
  19. BYDUREON BCISE [Concomitant]
     Active Substance: EXENATIDE
     Dosage: DOSE AND FREQUENCY UNKNOWN
  20. LEVOTHYROXINE SODIUM [Concomitant]
     Active Substance: LEVOTHYROXINE SODIUM
     Dosage: DOSE AND FREQUENCY UNKNOWN
  21. HYDROCHLOROTHIAZIDE\VALSARTAN [Concomitant]
     Active Substance: HYDROCHLOROTHIAZIDE\VALSARTAN
     Dosage: DOSE AND FREQUENCY UNKNOWN
  22. ZOFRAN [Concomitant]
     Active Substance: ONDANSETRON HYDROCHLORIDE
     Dosage: DOSE AND FREQUENCY UNKNOWN
  23. NYSTATIN [Concomitant]
     Active Substance: NYSTATIN
     Dosage: DOSE AND FREQUENCY UNKNOWN
  24. PRILOSEC [Concomitant]
     Active Substance: OMEPRAZOLE MAGNESIUM
     Dosage: DOSE AND FREQUENCY UNKNOWN
  25. TUMS [Concomitant]
     Active Substance: CALCIUM CARBONATE
     Dosage: DOSE AND FREQUENCY UNKNOWN
  26. IMODIUM [Concomitant]
     Active Substance: LOPERAMIDE HYDROCHLORIDE
     Dosage: DOSE AND FREQUENCY UNKNOWN
  27. MAGNESIUM [Concomitant]
     Active Substance: MAGNESIUM
     Dosage: DOSE AND FREQUENCY UNKNOWN
  28. UREA [Concomitant]
     Active Substance: UREA
     Dosage: DOSE AND FREQUENCY UNKNOWN

REACTIONS (2)
  - Cardiac failure congestive [Not Recovered/Not Resolved]
  - Oedema [Not Recovered/Not Resolved]

NARRATIVE: CASE EVENT DATE: 20240901
